FAERS Safety Report 8992116 (Version 1)
Quarter: 2012Q4

REPORT INFORMATION
  Report Type: 
  Country: US (occurrence: US)
  Receive Date: 20121231
  Receipt Date: 20121231
  Transmission Date: 20130627
  Serious: Yes (Hospitalization)
  Sender: FDA-Public Use
  Company Number: US-B.I. PHARMACEUTICALS,INC./RIDGEFIELD-2012-BI-04212BP

PATIENT
  Age: 60 Year
  Sex: Female
  Weight: 97 kg

DRUGS (2)
  1. DULCOLAX STOOL SOFTENER [Suspect]
     Indication: FAECES HARD
     Dosage: 100 mg
     Route: 048
     Dates: start: 201209
  2. DULCOLAX TABLETS [Suspect]
     Indication: CONSTIPATION
     Route: 048
     Dates: start: 201204

REACTIONS (3)
  - Upper limb fracture [Recovered/Resolved]
  - Fall [Recovered/Resolved]
  - Renal impairment [Unknown]
